FAERS Safety Report 7215975-5 (Version None)
Quarter: 2011Q1

REPORT INFORMATION
  Report Type: 
  Country: None (occurrence: None)
  Receive Date: 20110107
  Receipt Date: 20101229
  Transmission Date: 20110831
  Serious: Yes (Life-Threatening, Hospitalization)
  Sender: FDA-Public Use
  Company Number: FR-KINGPHARMUSA00001-K201001560

PATIENT
  Age: 39 Year
  Sex: Female

DRUGS (9)
  1. ALTACE [Suspect]
     Dosage: 2.5 MG, TID
     Route: 048
     Dates: end: 20100525
  2. DIAMICRON [Concomitant]
     Dosage: 60 MG, QD
  3. LEVOTHYROX [Concomitant]
     Dosage: 100 MCG, QD
  4. KETOPROFEN [Suspect]
     Dosage: 150 MG, QD
     Route: 048
     Dates: start: 20100522, end: 20100524
  5. TAHOR [Concomitant]
     Dosage: 10 MG, QD
  6. LASIX [Suspect]
     Dosage: 20 MG, BID
     Dates: start: 20100515, end: 20100524
  7. ATENOLOL [Concomitant]
     Dosage: 100 MG, QD
  8. GLUCOPHAGE [Concomitant]
     Dosage: 2550 MG, QD
     Dates: start: 20100515, end: 20100524
  9. TERCIAN [Concomitant]
     Dosage: 25 MG, QD

REACTIONS (10)
  - DEHYDRATION [None]
  - ANURIA [None]
  - HEMIPLEGIA [None]
  - HYPOVOLAEMIA [None]
  - CEREBROVASCULAR ACCIDENT [None]
  - CARDIO-RESPIRATORY ARREST [None]
  - CONFUSIONAL STATE [None]
  - RENAL FAILURE ACUTE [None]
  - HYPERKALAEMIA [None]
  - DIARRHOEA [None]
